FAERS Safety Report 13843416 (Version 1)
Quarter: 2017Q3

REPORT INFORMATION
  Report Type: Spontaneous
  Country: US (occurrence: US)
  Receive Date: 20170808
  Receipt Date: 20170808
  Transmission Date: 20171127
  Serious: No
  Sender: FDA-Public Use
  Company Number: US-ACCORD-042753

PATIENT

DRUGS (1)
  1. ANASTROZOLE ACCORD [Suspect]
     Active Substance: ANASTROZOLE
     Indication: PRODUCT USED FOR UNKNOWN INDICATION
     Dates: start: 20160706, end: 201607

REACTIONS (3)
  - Arthralgia [Unknown]
  - Product substitution issue [Unknown]
  - Insomnia [Unknown]

NARRATIVE: CASE EVENT DATE: 201607
